FAERS Safety Report 12949937 (Version 1)
Quarter: 2016Q4

REPORT INFORMATION
  Report Type: Spontaneous
  Country: US (occurrence: US)
  Receive Date: 20161116
  Receipt Date: 20161116
  Transmission Date: 20170207
  Serious: Yes (Other)
  Sender: FDA-Public Use
  Company Number: None

PATIENT
  Age: 64 Year
  Sex: Male
  Weight: 99 kg

DRUGS (8)
  1. LATANOPROST. [Concomitant]
     Active Substance: LATANOPROST
  2. DORZALIMIDE [Concomitant]
  3. TIMOLOL. [Concomitant]
     Active Substance: TIMOLOL
  4. IBUPROFEN. [Concomitant]
     Active Substance: IBUPROFEN
  5. TURMERIC/CURCUMIN [Concomitant]
  6. BRIMONIDINE TARTRATE. [Suspect]
     Active Substance: BRIMONIDINE TARTRATE
     Indication: GLAUCOMA
     Dosage: ?          QUANTITY:5 DROP(S);OTHER FREQUENCY:BID OS, TID OD;?
     Route: 047
     Dates: start: 20151101
  7. BRIMONIDINE [Concomitant]
     Active Substance: BRIMONIDINE TARTRATE
  8. ASA [Concomitant]
     Active Substance: ASPIRIN

REACTIONS (4)
  - Discomfort [None]
  - Accidental exposure to product packaging [None]
  - Product packaging issue [None]
  - Product substitution issue [None]

NARRATIVE: CASE EVENT DATE: 20161115
